FAERS Safety Report 11352397 (Version 1)
Quarter: 2015Q3

REPORT INFORMATION
  Report Type: Spontaneous
  Country: US (occurrence: US)
  Receive Date: 20150807
  Receipt Date: 20150807
  Transmission Date: 20151125
  Serious: No
  Sender: FDA-Public Use
  Company Number: US-JNJFOC-20140615053

PATIENT
  Age: 67 Year
  Sex: Female
  Weight: 56.7 kg

DRUGS (3)
  1. MENS ROGAINE EXTRA STRENGTH [Suspect]
     Active Substance: MINOXIDIL
     Indication: HAIR GROWTH ABNORMAL
     Dosage: ABOUT A YEAR
     Route: 061
  2. MENS ROGAINE EXTRA STRENGTH [Suspect]
     Active Substance: MINOXIDIL
     Route: 061
  3. ANTI-ANXIETY [Concomitant]
     Active Substance: UNSPECIFIED INGREDIENT
     Indication: GASTRIC DISORDER
     Route: 065

REACTIONS (2)
  - Pruritus [Unknown]
  - Lacrimation increased [Recovered/Resolved]
